FAERS Safety Report 9896936 (Version 1)
Quarter: 2014Q1

REPORT INFORMATION
  Report Type: Report from Study
  Country: FR (occurrence: FR)
  Receive Date: 20140214
  Receipt Date: 20140214
  Transmission Date: 20141002
  Serious: Yes (Hospitalization)
  Sender: FDA-Public Use
  Company Number: FR-ROCHE-1344179

PATIENT
  Sex: Female

DRUGS (6)
  1. RITUXIMAB [Suspect]
     Indication: RHEUMATOID ARTHRITIS
     Route: 041
     Dates: start: 20071030
  2. RITUXIMAB [Suspect]
     Route: 041
     Dates: start: 20071115
  3. METHOTREXATE [Concomitant]
     Route: 065
  4. CORTANCYL [Concomitant]
     Route: 065
  5. METHYLPREDNISOLONE [Concomitant]
     Indication: PREMEDICATION
     Route: 065
  6. PARACETAMOL [Concomitant]
     Indication: PREMEDICATION

REACTIONS (7)
  - Infusion related reaction [Recovered/Resolved]
  - Vitamin D deficiency [Recovered/Resolved]
  - Respiratory disorder [Recovered/Resolved]
  - Bronchitis [Recovered/Resolved]
  - Fall [Recovered/Resolved]
  - Spinal corpectomy [Recovered/Resolved]
  - Fall [Unknown]
